FAERS Safety Report 19065708 (Version 2)
Quarter: 2021Q1

REPORT INFORMATION
  Report Type: Spontaneous
  Country: NL (occurrence: NL)
  Receive Date: 20210327
  Receipt Date: 20210327
  Transmission Date: 20210420
  Serious: Yes (Life-Threatening)
  Sender: FDA-Public Use
  Company Number: NL-TEVA-2021-NL-1893340

PATIENT
  Age: 92 Year
  Sex: Female
  Weight: 56 kg

DRUGS (8)
  1. AZITROMYCINE TABLET 250MG / BRAND NAME NOT SPECIFIED [Concomitant]
     Indication: CHRONIC OBSTRUCTIVE PULMONARY DISEASE
     Dosage: 250 MILLIGRAM DAILY; MAINTENANCE TREATMENT FOR COPD,THERAPY START DATE ASKU, THERAPY END DATE ASKU
  2. MONTELUKAST TABLET OMHULD 10MG / BRAND NAME NOT SPECIFIED [Concomitant]
     Active Substance: MONTELUKAST SODIUM
     Dosage: THERAPY START DATE ASKU, THERAPY END DATE ASKU, 10 MG (MILLIGRAM)
  3. SALBUTAMOL AEROSOL 100UG/DO / VENTOLIN  100 AER CFKVR 100MCG/DO SPBS 2 [Concomitant]
     Dosage: AEROSOL, 100 UG / DOSE (MICROGRAMS PER DOSE),THERAPY START DATE ASKU, THERAPY END DATE ASKU
  4. PREDNISOLON CAPSULE 30MG / BRAND NAME NOT SPECIFIED [Concomitant]
     Dosage: 30 MG (MILLIGRAM),THERAPY START DATE ASKU, THERAPY END DATE ASKU
  5. XARELTO [Concomitant]
     Active Substance: RIVAROXABAN
     Dosage: 20 MG (MILLIGRAM),THERAPY START DATE ASKU, THERAPY END DATE ASKU
  6. MOXIFLOXACINE TABLET FO 400MG / BRAND NAME NOT SPECIFIED [Suspect]
     Active Substance: MOXIFLOXACIN
     Indication: CHRONIC OBSTRUCTIVE PULMONARY DISEASE
  7. TIOTROPIUM/OLODATEROL VERNEVELVLST 2,5/2,5UG/DO / SPIOLTO RESPIMAT INH [Concomitant]
     Active Substance: OLODATEROL\TIOTROPIUM
     Dosage: 2.5 / 2.5 UG / DOSE (MICROGRAMS PER DOSE),THERAPY START DATE ASKU, THERAPY END DATE ASKU
  8. MOXIFLOXACINE TABLET FO 400MG / BRAND NAME NOT SPECIFIED [Suspect]
     Active Substance: MOXIFLOXACIN
     Indication: RESPIRATORY TRACT INFECTION
     Dosage: 1DD 1, THERAPY END DATE ASKU
     Dates: start: 20210222

REACTIONS (6)
  - Consciousness fluctuating [Recovering/Resolving]
  - Fatigue [Recovering/Resolving]
  - Pyrexia [Recovering/Resolving]
  - Chronic obstructive pulmonary disease [Recovering/Resolving]
  - Thirst decreased [Recovering/Resolving]
  - Malaise [Recovering/Resolving]

NARRATIVE: CASE EVENT DATE: 20210222
